FAERS Safety Report 12326228 (Version 1)
Quarter: 2016Q2

REPORT INFORMATION
  Report Type: Spontaneous
  Country: US (occurrence: None)
  Receive Date: 20160502
  Receipt Date: 20160502
  Transmission Date: 20160815
  Serious: No
  Sender: FDA-Public Use
  Company Number: None

PATIENT
  Age: 62 Year
  Sex: Male
  Weight: 76.2 kg

DRUGS (2)
  1. OVER THE COUNTER MULTIVITAMINS [Concomitant]
  2. BACLOFEN, 10 MG [Suspect]
     Active Substance: BACLOFEN
     Indication: MUSCLE SPASMS
     Route: 048
     Dates: start: 20160429, end: 20160430

REACTIONS (5)
  - Somnolence [None]
  - Disorientation [None]
  - Confusional state [None]
  - Inappropriate schedule of drug administration [None]
  - Dizziness [None]

NARRATIVE: CASE EVENT DATE: 20160430
